FAERS Safety Report 12741579 (Version 1)
Quarter: 2016Q3

REPORT INFORMATION
  Report Type: Report from Study
  Country: US (occurrence: US)
  Receive Date: 20160914
  Receipt Date: 20160914
  Transmission Date: 20161109
  Serious: No
  Sender: FDA-Public Use
  Company Number: PHEH2016US022739

PATIENT
  Age: 26 Year
  Sex: Female

DRUGS (1)
  1. GILENYA [Suspect]
     Active Substance: FINGOLIMOD HYDROCHLORIDE
     Indication: MULTIPLE SCLEROSIS
     Dosage: 0.5 MG, QD
     Route: 048
     Dates: start: 20160826

REACTIONS (9)
  - Nasopharyngitis [Unknown]
  - Vision blurred [Unknown]
  - Feeling abnormal [Unknown]
  - Migraine with aura [Unknown]
  - Hypoaesthesia [Unknown]
  - Anxiety [Unknown]
  - Headache [Unknown]
  - Pharyngeal oedema [Unknown]
  - Hypoaesthesia [Recovered/Resolved]

NARRATIVE: CASE EVENT DATE: 20160903
